FAERS Safety Report 9874674 (Version 2)
Quarter: 2014Q1

REPORT INFORMATION
  Report Type: Report from Study
  Country: JP (occurrence: JP)
  Receive Date: 20140206
  Receipt Date: 20140226
  Transmission Date: 20141002
  Serious: Yes (Hospitalization)
  Sender: FDA-Public Use
  Company Number: PHHY2014JP012517

PATIENT
  Age: 57 Year
  Sex: Female

DRUGS (2)
  1. MENOAID COMBIPATCH [Suspect]
     Indication: HORMONE REPLACEMENT THERAPY
     Dosage: TWICE A WEEK
     Route: 062
     Dates: start: 20111014, end: 20130615
  2. ESTRANA [Concomitant]
     Dosage: UNK UKN, UNK
     Route: 062

REACTIONS (3)
  - Cerebral haemorrhage [Recovering/Resolving]
  - Sensory disturbance [Unknown]
  - Putamen haemorrhage [Unknown]
